FAERS Safety Report 8346527-1 (Version None)
Quarter: 2012Q2

REPORT INFORMATION
  Report Type: 
  Country: None (occurrence: None)
  Receive Date: 20120509
  Receipt Date: 20101005
  Transmission Date: 20120825
  Serious: Yes (Hospitalization)
  Sender: FDA-Public Use
  Company Number: US-TEVA-2010004317

PATIENT
  Sex: Female

DRUGS (2)
  1. YASMIN [Concomitant]
  2. AMRIX [Suspect]
     Route: 048
     Dates: start: 20090720, end: 20090723

REACTIONS (1)
  - PSYCHOTIC DISORDER [None]
